FAERS Safety Report 6178216-6 (Version None)
Quarter: 2009Q2

REPORT INFORMATION
  Report Type: 
  Country: None (occurrence: None)
  Receive Date: 20090504
  Receipt Date: 20090421
  Transmission Date: 20091009
  Serious: Yes (Hospitalization)
  Sender: FDA-Public Use
  Company Number: GT-TEVA-193535ISR

PATIENT
  Age: 60 Year
  Sex: Male

DRUGS (4)
  1. BUDESONIDE [Suspect]
     Indication: ASTHMA
     Route: 055
     Dates: start: 20090301, end: 20090420
  2. FORMOTEROL FUMARATE [Concomitant]
  3. SALBUTAMOL [Concomitant]
  4. METFORMIN HCL [Concomitant]

REACTIONS (2)
  - BRONCHOSPASM [None]
  - PNEUMONIA [None]
